FAERS Safety Report 5080340-6 (Version None)
Quarter: 2006Q3

REPORT INFORMATION
  Report Type: 
  Country: None (occurrence: None)
  Receive Date: 20060815
  Receipt Date: 20060630
  Transmission Date: 20061208
  Serious: Yes (Other)
  Sender: FDA-Public Use
  Company Number: PHBS2006BE09997

PATIENT
  Age: 73 Year
  Sex: Male

DRUGS (6)
  1. ZOMETA [Suspect]
     Indication: METASTASES TO BONE
     Dosage: 4 MG, QMO
     Route: 065
     Dates: start: 20030925, end: 20050510
  2. ZOMETA [Suspect]
     Dosage: 4 MG, QMO
     Route: 065
     Dates: start: 20060213, end: 20060620
  3. NOVANTRONE [Concomitant]
     Dosage: UNK, UNK
     Route: 065
     Dates: start: 20060501, end: 20060701
  4. TAXOTERE [Concomitant]
     Dates: start: 20060510
  5. ESTRACYT [Concomitant]
  6. MEDROL [Concomitant]
     Dosage: 4 MG/D

REACTIONS (3)
  - ACTINOMYCOSIS [None]
  - OSTEONECROSIS [None]
  - STREPTOCOCCAL SEROLOGY POSITIVE [None]
